FAERS Safety Report 19036620 (Version 2)
Quarter: 2021Q2

REPORT INFORMATION
  Report Type: Spontaneous
  Country: JP (occurrence: JP)
  Receive Date: 20210322
  Receipt Date: 20210405
  Transmission Date: 20210717
  Serious: Yes (Death, Hospitalization, Other)
  Sender: FDA-Public Use
  Company Number: JP-AMGEN-JPNSP2021042320

PATIENT
  Age: 89 Year
  Sex: Male

DRUGS (1)
  1. EVENITY [Suspect]
     Active Substance: ROMOSOZUMAB-AQQG
     Indication: OSTEOPOROSIS
     Dosage: 210 MILLIGRAM
     Route: 058
     Dates: start: 20200331

REACTIONS (1)
  - Intestinal obstruction [Fatal]

NARRATIVE: CASE EVENT DATE: 20201219
